FAERS Safety Report 23241771 (Version 2)
Quarter: 2023Q4

REPORT INFORMATION
  Report Type: Spontaneous
  Country: US (occurrence: US)
  Receive Date: 20231129
  Receipt Date: 20231207
  Transmission Date: 20240110
  Serious: Yes (Other)
  Sender: FDA-Public Use
  Company Number: US-AGIOS-2311US03526

PATIENT

DRUGS (1)
  1. PYRUKYND [Suspect]
     Active Substance: MITAPIVAT
     Indication: Pyruvate kinase deficiency anaemia
     Route: 065

REACTIONS (2)
  - Drug-induced liver injury [Not Recovered/Not Resolved]
  - Hepatic enzyme abnormal [Unknown]
